FAERS Safety Report 8312952-8 (Version None)
Quarter: 2012Q2

REPORT INFORMATION
  Report Type: 
  Country: None (occurrence: None)
  Receive Date: 20120426
  Receipt Date: 20120418
  Transmission Date: 20120825
  Serious: Yes (Other)
  Sender: FDA-Public Use
  Company Number: BR-US-EMD SERONO, INC.-7003593

PATIENT
  Sex: Female

DRUGS (9)
  1. GINKGO BILOBA [Concomitant]
     Indication: PRODUCT USED FOR UNKNOWN INDICATION
  2. OMEPRAZOLE [Concomitant]
     Indication: PRODUCT USED FOR UNKNOWN INDICATION
  3. MANTIDAN [Concomitant]
     Indication: PRODUCT USED FOR UNKNOWN INDICATION
  4. IBUPROFEN [Concomitant]
     Indication: PREMEDICATION
  5. REBIF [Suspect]
     Indication: RELAPSING-REMITTING MULTIPLE SCLEROSIS
     Route: 058
     Dates: start: 20070601
  6. REBIF [Suspect]
     Route: 058
     Dates: start: 20100128
  7. NEULEPTIL [Concomitant]
     Indication: PRODUCT USED FOR UNKNOWN INDICATION
  8. TOPIRAMATE [Concomitant]
     Indication: PRODUCT USED FOR UNKNOWN INDICATION
  9. CLONAZEPAM [Concomitant]
     Indication: PRODUCT USED FOR UNKNOWN INDICATION

REACTIONS (22)
  - ARTHRALGIA [None]
  - MALAISE [None]
  - INSOMNIA [None]
  - SERUM FERRITIN DECREASED [None]
  - HEADACHE [None]
  - TREMOR [None]
  - PARAESTHESIA [None]
  - THYROIDITIS [None]
  - SYNCOPE [None]
  - APATHY [None]
  - COLD SWEAT [None]
  - INJECTION SITE ERYTHEMA [None]
  - HYPERTENSION [None]
  - INJECTION SITE NODULE [None]
  - HYPERTHYROIDISM [None]
  - DECREASED APPETITE [None]
  - MUSCULAR WEAKNESS [None]
  - DIZZINESS [None]
  - MULTIPLE SCLEROSIS RELAPSE [None]
  - DYSPNOEA [None]
  - PYREXIA [None]
  - WRONG TECHNIQUE IN DRUG USAGE PROCESS [None]
